FAERS Safety Report 14448954 (Version 10)
Quarter: 2019Q1

REPORT INFORMATION
  Report Type: Report from Study
  Country: US (occurrence: US)
  Receive Date: 20180126
  Receipt Date: 20190328
  Transmission Date: 20190417
  Serious: Yes (Hospitalization, Other)
  Sender: FDA-Public Use
  Company Number: US-ACTELION-A-NJ2017-150789

PATIENT
  Sex: Female
  Weight: 88.44 kg

DRUGS (9)
  1. ORENITRAM [Concomitant]
     Active Substance: TREPROSTINIL
  2. LASIX [Concomitant]
     Active Substance: FUROSEMIDE
  3. POTASSIUM [Concomitant]
     Active Substance: POTASSIUM
  4. TRACLEER [Suspect]
     Active Substance: BOSENTAN
     Indication: PULMONARY ARTERIAL HYPERTENSION
     Dosage: 125 MG, BID
     Route: 048
  5. OXYGEN. [Concomitant]
     Active Substance: OXYGEN
  6. METOPROLOL. [Suspect]
     Active Substance: METOPROLOL
     Indication: PRODUCT USED FOR UNKNOWN INDICATION
     Route: 065
  7. ADCIRCA [Concomitant]
     Active Substance: TADALAFIL
  8. TRACLEER [Suspect]
     Active Substance: BOSENTAN
     Dosage: 125 MG, BID
     Route: 048
  9. LOSARTAN. [Concomitant]
     Active Substance: LOSARTAN

REACTIONS (14)
  - Irritable bowel syndrome [Unknown]
  - Hypotension [Unknown]
  - Fatigue [Unknown]
  - Arrhythmia [Unknown]
  - Heart rate decreased [Unknown]
  - Nasal congestion [Unknown]
  - Infection [Unknown]
  - Dizziness [Unknown]
  - Weight decreased [Unknown]
  - Nausea [Unknown]
  - Headache [Unknown]
  - Heart rate irregular [Unknown]
  - Diarrhoea [Unknown]
  - Sinusitis [Unknown]
